FAERS Safety Report 24831250 (Version 3)
Quarter: 2025Q3

REPORT INFORMATION
  Report Type: Report from Study
  Country: US (occurrence: US)
  Receive Date: 20250110
  Receipt Date: 20250825
  Transmission Date: 20251021
  Serious: Yes (Other)
  Sender: MYLAN
  Company Number: US-MYLANLABS-2025M1002277

PATIENT
  Sex: Female

DRUGS (4)
  1. DILANTIN [Suspect]
     Active Substance: PHENYTOIN
     Indication: Product used for unknown indication
  2. DILANTIN [Suspect]
     Active Substance: PHENYTOIN
     Dosage: 50 MILLIGRAM, BID (TWO 50MG A DAY)
  3. DILANTIN [Suspect]
     Active Substance: PHENYTOIN
  4. ELIQUIS [Suspect]
     Active Substance: APIXABAN
     Indication: Product used for unknown indication

REACTIONS (10)
  - Seizure [Unknown]
  - Deep vein thrombosis [Unknown]
  - Pulmonary embolism [Unknown]
  - Autoimmune disorder [Unknown]
  - Thrombosis [Unknown]
  - Tissue injury [Unknown]
  - Illness [Unknown]
  - Coagulopathy [Unknown]
  - Dyspnoea [Unknown]
  - Pain [Unknown]
